FAERS Safety Report 13121675 (Version 1)
Quarter: 2017Q1

REPORT INFORMATION
  Report Type: Spontaneous
  Country: AU (occurrence: AU)
  Receive Date: 20170117
  Receipt Date: 20170117
  Transmission Date: 20170428
  Serious: Yes (Hospitalization, Other)
  Sender: FDA-Public Use
  Company Number: AU-PFIZER INC-2017010085

PATIENT
  Sex: Female

DRUGS (3)
  1. LIPITOR [Suspect]
     Active Substance: ATORVASTATIN CALCIUM
     Dosage: UNK
  2. ATORVASTATIN CALCIUM. [Suspect]
     Active Substance: ATORVASTATIN CALCIUM
     Dosage: 80 MG, UNK
  3. TORVASTAT [Suspect]
     Active Substance: ATORVASTATIN CALCIUM
     Dosage: UNK

REACTIONS (14)
  - Dehydration [Unknown]
  - Dyspnoea [Unknown]
  - Mucous stools [Unknown]
  - Grip strength decreased [Recovered/Resolved]
  - Blood pressure increased [Unknown]
  - Product size issue [Unknown]
  - Faeces hard [Unknown]
  - Dysphagia [Unknown]
  - Arrhythmia [Unknown]
  - Asthenia [Recovered/Resolved]
  - Dry mouth [Recovered/Resolved]
  - Nocturia [Unknown]
  - Thirst [Recovered/Resolved]
  - Myalgia [Unknown]
